FAERS Safety Report 23973095 (Version 1)
Quarter: 2024Q2

REPORT INFORMATION
  Report Type: Spontaneous
  Country: JP (occurrence: None)
  Receive Date: 20240613
  Receipt Date: 20240613
  Transmission Date: 20240716
  Serious: Yes (Other)
  Sender: FDA-Public Use
  Company Number: 2023A277854

PATIENT
  Age: 58 Year
  Sex: Female

DRUGS (12)
  1. FASENRA [Suspect]
     Active Substance: BENRALIZUMAB
     Indication: Asthma
     Route: 058
     Dates: start: 202303
  2. FASENRA [Suspect]
     Active Substance: BENRALIZUMAB
     Indication: Asthma
     Dosage: DOSE UNKNOWN
     Route: 058
     Dates: start: 202307, end: 202309
  3. PREDNISOLONE [Concomitant]
     Active Substance: PREDNISOLONE
     Indication: Asthma
     Dosage: NUMBER OF SEPARATE DOSAGES UNKNOWN
     Route: 048
     Dates: end: 202011
  4. PREDNISOLONE [Concomitant]
     Active Substance: PREDNISOLONE
     Indication: Asthma
     Dosage: NUMBER OF SEPARATE DOSAGES UNKNOWN
     Route: 048
     Dates: start: 202011, end: 202203
  5. PREDNISOLONE [Concomitant]
     Active Substance: PREDNISOLONE
     Indication: Asthma
     Dosage: NUMBER OF SEPARATE DOSAGES UNKNOWN
     Route: 048
     Dates: start: 202203, end: 202204
  6. PREDNISOLONE [Concomitant]
     Active Substance: PREDNISOLONE
     Indication: Asthma
     Dosage: NUMBER OF SEPARATE DOSAGES UNKNOWN
     Route: 048
     Dates: start: 202204, end: 202205
  7. PREDNISOLONE [Concomitant]
     Active Substance: PREDNISOLONE
     Indication: Asthma
     Dosage: NUMBER OF SEPARATE DOSAGES UNKNOWN
     Route: 048
     Dates: start: 202205, end: 202207
  8. PREDNISOLONE [Concomitant]
     Active Substance: PREDNISOLONE
     Indication: Asthma
     Dosage: NUMBER OF SEPARATE DOSAGES UNKNOWN
     Route: 048
     Dates: start: 202207, end: 202302
  9. PREDNISOLONE [Concomitant]
     Active Substance: PREDNISOLONE
     Indication: Asthma
     Dosage: NUMBER OF SEPARATE DOSAGES UNKNOWN
     Route: 048
     Dates: start: 202302, end: 202303
  10. PREDNISOLONE [Concomitant]
     Active Substance: PREDNISOLONE
     Indication: Asthma
     Dosage: NUMBER OF SEPARATE DOSAGES UNKNOWN
     Route: 048
     Dates: start: 202303, end: 202307
  11. PREDNISOLONE [Concomitant]
     Active Substance: PREDNISOLONE
     Indication: Asthma
     Dosage: NUMBER OF SEPARATE DOSAGES UNKNOWN
     Route: 048
     Dates: start: 202307
  12. UNSPECIFIED INGREDIENT [Concomitant]
     Active Substance: UNSPECIFIED INGREDIENT
     Indication: Asthma
     Dosage: DOSE UNKNOWN
     Route: 041
     Dates: start: 202203

REACTIONS (4)
  - Antineutrophil cytoplasmic antibody increased [Unknown]
  - Asthma [Unknown]
  - Dyspnoea [Unknown]
  - Wheezing [Unknown]

NARRATIVE: CASE EVENT DATE: 20230101
